FAERS Safety Report 15677304 (Version 1)
Quarter: 2018Q4

REPORT INFORMATION
  Report Type: Report from Study
  Country: NL (occurrence: NL)
  Receive Date: 20181130
  Receipt Date: 20181130
  Transmission Date: 20190205
  Serious: Yes (Other)
  Sender: FDA-Public Use
  Company Number: PHHY2018NL169690

PATIENT
  Age: 21 Year
  Sex: Male

DRUGS (2)
  1. ILARIS [Suspect]
     Active Substance: CANAKINUMAB
     Indication: MUCKLE-WELLS SYNDROME
     Dosage: UNK (ONCE IN EVERY 16 WEEKS)
     Route: 058
     Dates: start: 20120628
  2. ILARIS [Suspect]
     Active Substance: CANAKINUMAB
     Dosage: UNK (ONCE IN EVERY 16 WEEKS)
     Route: 058
     Dates: start: 20181025

REACTIONS (3)
  - Inappropriate schedule of product administration [Unknown]
  - Infection [Recovering/Resolving]
  - Abdominal abscess [Unknown]

NARRATIVE: CASE EVENT DATE: 20181122
